FAERS Safety Report 12580136 (Version 2)
Quarter: 2016Q3

REPORT INFORMATION
  Report Type: Spontaneous
  Country: US (occurrence: US)
  Receive Date: 20160721
  Receipt Date: 20160921
  Transmission Date: 20161109
  Serious: Yes (Other)
  Sender: FDA-Public Use
  Company Number: US-ALLERGAN-1663360US

PATIENT
  Age: 69 Year
  Sex: Female

DRUGS (2)
  1. PRED FORTE [Suspect]
     Active Substance: PREDNISOLONE ACETATE
     Indication: INTRAOCULAR PRESSURE INCREASED
     Dosage: UNK
     Route: 047
     Dates: start: 1996, end: 20160715
  2. PRED FORTE [Suspect]
     Active Substance: PREDNISOLONE ACETATE
     Indication: EYE DISORDER

REACTIONS (5)
  - Corneal disorder [Unknown]
  - Cataract [Unknown]
  - Drug dose omission [Unknown]
  - Off label use [Unknown]
  - Dry eye [Unknown]
